FAERS Safety Report 14312059 (Version 1)
Quarter: 2017Q4

REPORT INFORMATION
  Report Type: Spontaneous
  Country: JP (occurrence: JP)
  Receive Date: 20171221
  Receipt Date: 20171221
  Transmission Date: 20180321
  Serious: Yes (Hospitalization, Other)
  Sender: FDA-Public Use
  Company Number: JP-VISTAPHARM, INC.-VER201712-001353

PATIENT
  Age: 75 Year
  Sex: Female

DRUGS (5)
  1. VALPROIC ACID. [Suspect]
     Active Substance: VALPROIC ACID
     Indication: BIPOLAR DISORDER
  2. PEROSPIRONE [Concomitant]
     Active Substance: PEROSPIRONE
     Indication: BIPOLAR DISORDER
  3. L DOPA [Concomitant]
     Active Substance: LEVODOPA
     Indication: PARKINSONIAN GAIT
  4. VALPROIC ACID. [Suspect]
     Active Substance: VALPROIC ACID
  5. VALPROIC ACID. [Suspect]
     Active Substance: VALPROIC ACID

REACTIONS (3)
  - Parkinsonism [Recovered/Resolved]
  - Vascular parkinsonism [Recovered/Resolved]
  - Cognitive disorder [Recovered/Resolved]
